FAERS Safety Report 7650677-2 (Version None)
Quarter: 2011Q3

REPORT INFORMATION
  Report Type: 
  Country: None (occurrence: None)
  Receive Date: 20110802
  Receipt Date: 20110720
  Transmission Date: 20111222
  Serious: Yes (Other)
  Sender: FDA-Public Use
  Company Number: US-ASTRAZENECA-2008UW20411

PATIENT
  Age: 38 Year
  Sex: Female
  Weight: 95.3 kg

DRUGS (26)
  1. SEROQUEL [Suspect]
     Indication: AFFECTIVE DISORDER
     Route: 048
     Dates: start: 20030715, end: 20070514
  2. SEROQUEL [Suspect]
     Dosage: 25 MG, 1-3 PO QID
     Route: 048
     Dates: start: 20040818, end: 20050401
  3. ABILIFY [Concomitant]
     Dates: start: 20050401, end: 20070101
  4. SEROQUEL [Suspect]
     Indication: BIPOLAR DISORDER
     Route: 048
     Dates: start: 20030715, end: 20070514
  5. SEROQUEL [Suspect]
     Dosage: TID
     Route: 048
     Dates: end: 20060101
  6. CLARITIN [Concomitant]
     Dates: start: 20040819, end: 20060601
  7. ADVAIR DISKUS 100/50 [Concomitant]
     Dosage: 250/50 BD
     Dates: start: 20040819, end: 20050107
  8. SEROQUEL [Suspect]
     Dosage: 25 MG, 1-3 PO QID
     Route: 048
     Dates: start: 20040818, end: 20050401
  9. GEODON [Concomitant]
  10. ALBUTEROL SULFATE AUTOHALER [Concomitant]
     Dates: start: 20040819
  11. SEROQUEL [Suspect]
     Indication: DEPRESSION
     Route: 048
     Dates: start: 20030715, end: 20070514
  12. SEROQUEL [Suspect]
     Dosage: TID
     Route: 048
     Dates: end: 20060101
  13. LEXAPRO [Concomitant]
     Route: 048
     Dates: start: 20040818
  14. DESERYL [Concomitant]
     Dates: start: 20040227, end: 20040819
  15. VERAPAMIL [Concomitant]
     Dates: start: 20050401
  16. SEROQUEL [Suspect]
     Dosage: TID
     Route: 048
     Dates: end: 20060101
  17. ZOLOFT [Concomitant]
     Dates: start: 20020101, end: 20030101
  18. SEROQUEL [Suspect]
     Dosage: 25 MG, 1-3 PO QID
     Route: 048
     Dates: start: 20040818, end: 20050401
  19. CLOZAPINE [Concomitant]
     Dates: start: 20040101, end: 20060101
  20. RISPERDAL [Concomitant]
     Dates: start: 20020601, end: 20031001
  21. ZOLOFT [Concomitant]
     Dates: end: 20040227
  22. KLONOPIN [Concomitant]
     Dates: start: 20050401
  23. NEURONTIN [Concomitant]
     Dates: end: 20040818
  24. ADVAIR DISKUS 100/50 [Concomitant]
     Dosage: 50/500 BID
     Dates: start: 20050107
  25. HYDROCHLOROTHIAZIDE [Concomitant]
     Dates: start: 20060101
  26. PREVACID [Concomitant]
     Dates: start: 20041111

REACTIONS (8)
  - BLOOD CHOLESTEROL INCREASED [None]
  - OBESITY [None]
  - UTERINE CANCER [None]
  - HYPERLIPIDAEMIA [None]
  - TYPE 2 DIABETES MELLITUS [None]
  - GASTROOESOPHAGEAL REFLUX DISEASE [None]
  - BLOOD TRIGLYCERIDES INCREASED [None]
  - UTERINE LEIOMYOMA [None]
